FAERS Safety Report 14354926 (Version 2)
Quarter: 2018Q1

REPORT INFORMATION
  Report Type: Spontaneous
  Country: FR (occurrence: FR)
  Receive Date: 20180105
  Receipt Date: 20180108
  Transmission Date: 20180509
  Serious: Yes (Other)
  Sender: FDA-Public Use
  Company Number: FR-ABBVIE-18P-056-2212212-00

PATIENT
  Age: 62 Year
  Sex: Male

DRUGS (2)
  1. GARDENAL [Suspect]
     Active Substance: PHENOBARBITAL
     Indication: EPILEPSY
     Route: 048
  2. DEPAKINE [Suspect]
     Active Substance: VALPROATE SODIUM
     Indication: EPILEPSY
     Route: 048

REACTIONS (3)
  - Homicide [Unknown]
  - Road traffic accident [Unknown]
  - Epilepsy [Unknown]
